FAERS Safety Report 6076177 (Version 2)
Quarter: 2019Q3

REPORT INFORMATION
  Report Type: Spontaneous
  Country: DE (occurrence: DE)
  Receive Date: 20060619
  Receipt Date: 20190711
  Transmission Date: 20191005
  Serious: Yes (Life-Threatening, Hospitalization)
  Sender: FDA-Public Use
  Company Number: GXKR2006DE03177

PATIENT
  Age: 59 Year
  Sex: Male

DRUGS (4)
  1. AMIODARONE [Suspect]
     Active Substance: AMIODARONE
     Indication: ATRIAL FIBRILLATION
     Dosage: 48 ML, QD (2 ML, QH*24HRS (1050MG/50ML))
     Route: 042
     Dates: start: 200604
  2. AMIODARONE [Interacting]
     Active Substance: AMIODARONE
     Dosage: 200 MG, QD
     Route: 048
  3. METOPROLOL. [Interacting]
     Active Substance: METOPROLOL
     Indication: ATRIAL FIBRILLATION
     Dosage: 100 MG, UNK
     Route: 042
  4. DIGITOXIN [Interacting]
     Active Substance: DIGITOXIN
     Indication: ATRIAL FIBRILLATION
     Dosage: 0.4 MG, UNK
     Route: 042

REACTIONS (3)
  - Potentiating drug interaction [Recovered/Resolved]
  - Torsade de pointes [Recovered/Resolved]
  - Drug interaction [Recovered/Resolved]

NARRATIVE: CASE EVENT DATE: 200604
